FAERS Safety Report 8123962-8 (Version None)
Quarter: 2012Q1

REPORT INFORMATION
  Report Type: 
  Country: None (occurrence: None)
  Receive Date: 20120209
  Receipt Date: 20120125
  Transmission Date: 20120608
  Serious: Yes (Other)
  Sender: FDA-Public Use
  Company Number: FR-CELGENEUS-056-21880-12012689

PATIENT
  Sex: Female
  Weight: 55 kg

DRUGS (3)
  1. ASPIRIN [Concomitant]
     Route: 065
     Dates: start: 20100617, end: 20120125
  2. REVLIMID [Suspect]
     Indication: DIFFUSE LARGE B-CELL LYMPHOMA
     Dosage: 10 MILLIGRAM
     Route: 048
     Dates: start: 20100617, end: 20111228
  3. REVLIMID [Suspect]
     Route: 048
     Dates: end: 20120125

REACTIONS (1)
  - ENDOMETRIAL CANCER [None]
